FAERS Safety Report 6936465-0 (Version None)
Quarter: 2010Q3

REPORT INFORMATION
  Report Type: 
  Country: None (occurrence: None)
  Receive Date: 20100823
  Receipt Date: 20100714
  Transmission Date: 20110219
  Serious: Yes (Hospitalization, Other)
  Sender: FDA-Public Use
  Company Number: SE-ROCHE-656940

PATIENT
  Sex: Female
  Weight: 57 kg

DRUGS (3)
  1. ROACTEMRA [Suspect]
     Indication: RHEUMATOID ARTHRITIS
     Route: 042
     Dates: start: 20090602, end: 20090921
  2. PREDNISOLON [Concomitant]
  3. PREDNISOLON [Concomitant]

REACTIONS (3)
  - CEREBRAL INFARCTION [None]
  - HYPERLIPIDAEMIA [None]
  - TRANSIENT ISCHAEMIC ATTACK [None]
